FAERS Safety Report 18021800 (Version 1)
Quarter: 2020Q3

REPORT INFORMATION
  Report Type: Spontaneous
  Country: DE (occurrence: DE)
  Receive Date: 20200715
  Receipt Date: 20200715
  Transmission Date: 20201103
  Serious: Yes (Life-Threatening, Hospitalization, Other)
  Sender: FDA-Public Use
  Company Number: DE-AUROBINDO-AUR-APL-2020-034401

PATIENT
  Age: 27 Year
  Sex: Female
  Weight: 78 kg

DRUGS (8)
  1. LACOSAMIDE. [Suspect]
     Active Substance: LACOSAMIDE
     Dosage: 300 MILLIGRAM, TWO TIMES A DAY (IN BOTH THE EXTENSION STUDY AND THE INTRAVENOUS STUDY )
     Route: 042
  2. LACOSAMIDE. [Suspect]
     Active Substance: LACOSAMIDE
     Dosage: UNK
     Route: 065
  3. LACOSAMIDE. [Suspect]
     Active Substance: LACOSAMIDE
     Dosage: 200 GRAM QD IN REGULATORY TRIAL (SP755)
     Route: 065
     Dates: start: 2005
  4. LACOSAMIDE. [Suspect]
     Active Substance: LACOSAMIDE
     Indication: AUTONOMIC SEIZURE
     Dosage: UNK, REGULATORY TRIAL (SP757)
     Route: 042
  5. GABAPENTIN. [Suspect]
     Active Substance: GABAPENTIN
     Indication: PRODUCT USED FOR UNKNOWN INDICATION
     Dosage: 56 GRAM, SINGLE
     Route: 048
     Dates: start: 200604
  6. ZONISAMIDE. [Suspect]
     Active Substance: ZONISAMIDE
     Indication: PRODUCT USED FOR UNKNOWN INDICATION
     Dosage: 2.8 GRAM, SINGLE
     Route: 048
     Dates: start: 200604
  7. LACOSAMIDE. [Suspect]
     Active Substance: LACOSAMIDE
     Dosage: 12 GRAM, SINGLE
     Route: 048
     Dates: start: 200604
  8. TOPIRAMATE. [Suspect]
     Active Substance: TOPIRAMATE
     Indication: PRODUCT USED FOR UNKNOWN INDICATION
     Dosage: 2 GRAM, SINGLE
     Route: 048
     Dates: start: 200604

REACTIONS (10)
  - Electrocardiogram PR prolongation [Recovered/Resolved]
  - Coma [Recovered/Resolved]
  - Pneumonia aspiration [Recovered/Resolved]
  - Encephalopathy [Unknown]
  - Vomiting [Unknown]
  - Toxicity to various agents [Recovered/Resolved]
  - Hypotension [Recovered/Resolved]
  - Acidosis [Unknown]
  - Generalised tonic-clonic seizure [Recovered/Resolved]
  - Intentional overdose [Recovered/Resolved]

NARRATIVE: CASE EVENT DATE: 200604
